FAERS Safety Report 4655870-9 (Version None)
Quarter: 2005Q2

REPORT INFORMATION
  Report Type: 
  Country: None (occurrence: None)
  Receive Date: 20050505
  Receipt Date: 20050505
  Transmission Date: 20051028
  Serious: No
  Sender: FDA-Public Use
  Company Number: None

PATIENT
  Sex: Female

DRUGS (1)
  1. FENTANYL [Suspect]
     Indication: PAIN
     Dosage: 100 MG TOP  2 Q MWF
     Route: 061

REACTIONS (2)
  - APPLICATION SITE DERMATITIS [None]
  - PHARMACEUTICAL PRODUCT COMPLAINT [None]
